FAERS Safety Report 4449026-2 (Version None)
Quarter: 2004Q3

REPORT INFORMATION
  Report Type: 
  Country: None (occurrence: None)
  Receive Date: 20040909
  Receipt Date: 20040824
  Transmission Date: 20050211
  Serious: Yes (Hospitalization, Other)
  Sender: FDA-Public Use
  Company Number: USA040876391

PATIENT
  Age: 79 Year
  Sex: Male
  Weight: 94 kg

DRUGS (7)
  1. FORTEO [Suspect]
     Indication: OSTEOPOROSIS
     Dosage: 20 UG DAY
     Dates: start: 20021101
  2. FOSAMAX (ALENDRONTE SODIUM) [Concomitant]
  3. ZOCOR [Concomitant]
  4. LISINOPRIL [Concomitant]
  5. ASPIRIN [Concomitant]
  6. CALCIUM WITH VITAMIN D [Concomitant]
  7. ACIPHEX [Concomitant]

REACTIONS (3)
  - FOREIGN BODY TRAUMA [None]
  - LOSS OF CONSCIOUSNESS [None]
  - OESOPHAGEAL ULCER [None]
